FAERS Safety Report 9912228 (Version 1)
Quarter: 2014Q1

REPORT INFORMATION
  Report Type: Spontaneous
  Country: AU (occurrence: AU)
  Receive Date: 20140220
  Receipt Date: 20140220
  Transmission Date: 20141002
  Serious: Yes (Hospitalization, Other)
  Sender: FDA-Public Use
  Company Number: AU-009507513-1402AUS008928

PATIENT
  Age: 74 Year
  Sex: Female

DRUGS (7)
  1. AVANZA [Suspect]
     Dosage: 15 MILLIGRAM DAILY
     Route: 048
  2. CALCIUM (UNSPECIFIED) [Concomitant]
  3. CHOLECALCIFEROL [Concomitant]
  4. OXAZEPAM [Concomitant]
  5. ACETAMINOPHEN [Concomitant]
  6. AMLODIPINE BESYLATE (+) PERINDOPRIL ARGININE [Concomitant]
  7. ROSUVASTATIN CALCIUM [Concomitant]

REACTIONS (2)
  - Loss of consciousness [Recovered/Resolved]
  - Dizziness [Recovered/Resolved]
